FAERS Safety Report 6389783-1 (Version None)
Quarter: 2009Q4

REPORT INFORMATION
  Report Type: 
  Country: None (occurrence: None)
  Receive Date: 20091002
  Receipt Date: 20091002
  Transmission Date: 20100525
  Serious: Yes (Life-Threatening)
  Sender: FDA-Public Use
  Company Number: None

PATIENT
  Age: 22 Year
  Sex: Female
  Weight: 86.1834 kg

DRUGS (3)
  1. ROPIVACAINE HYDROCHLORIDE [Suspect]
  2. CARBOCAINE [Suspect]
  3. DEXAMETHASONE TAB [Suspect]

REACTIONS (1)
  - GRAND MAL CONVULSION [None]
